FAERS Safety Report 10068211 (Version 1)
Quarter: 2014Q2

REPORT INFORMATION
  Report Type: Spontaneous
  Country: US (occurrence: US)
  Receive Date: 20140409
  Receipt Date: 20140409
  Transmission Date: 20141212
  Serious: No
  Sender: FDA-Public Use
  Company Number: US-B.I. PHARMACEUTICALS,INC./RIDGEFIELD-2014-BI-14018PF

PATIENT
  Sex: Female
  Weight: 117.9 kg

DRUGS (3)
  1. SPIRIVA [Suspect]
     Indication: ASTHMA
     Route: 065
  2. SYMBICORT [Suspect]
     Indication: ASTHMA
     Route: 065
  3. PROAIR [Suspect]
     Indication: ASTHMA
     Route: 065

REACTIONS (2)
  - Dry mouth [Unknown]
  - Lip dry [Unknown]
